FAERS Safety Report 15331180 (Version 2)
Quarter: 2020Q1

REPORT INFORMATION
  Report Type: Spontaneous
  Country: JP (occurrence: JP)
  Receive Date: 20180829
  Receipt Date: 20200217
  Transmission Date: 20200409
  Serious: Yes (Other)
  Sender: FDA-Public Use
  Company Number: JP-ABBVIE-18K-087-2467117-00

PATIENT

DRUGS (1)
  1. MAVIRET [Suspect]
     Active Substance: GLECAPREVIR\PIBRENTASVIR
     Indication: PRODUCT USED FOR UNKNOWN INDICATION
     Route: 048

REACTIONS (1)
  - Interstitial lung disease [Unknown]
